FAERS Safety Report 23536330 (Version 1)
Quarter: 2024Q1

REPORT INFORMATION
  Report Type: Spontaneous
  Country: ES (occurrence: ES)
  Receive Date: 20240219
  Receipt Date: 20240219
  Transmission Date: 20240410
  Serious: Yes (Death, Other)
  Sender: FDA-Public Use
  Company Number: ES-BAXTER-2023BAX037128

PATIENT
  Age: 92 Year
  Sex: Female

DRUGS (13)
  1. CYCLOPHOSPHAMIDE [Suspect]
     Active Substance: CYCLOPHOSPHAMIDE
     Indication: Invasive ductal breast carcinoma
     Dosage: UNK, FROM AUG-2021 TO DEC-2021
     Route: 048
  2. CYCLOPHOSPHAMIDE [Suspect]
     Active Substance: CYCLOPHOSPHAMIDE
     Indication: Human epidermal growth factor receptor negative
  3. CAPECITABINE [Suspect]
     Active Substance: CAPECITABINE
     Indication: Breast cancer metastatic
     Dosage: UNK, FROM AUG-2021 TO DEC-2021
     Route: 048
  4. CAPECITABINE [Suspect]
     Active Substance: CAPECITABINE
     Indication: HER2 negative breast cancer
  5. CAPECITABINE [Suspect]
     Active Substance: CAPECITABINE
     Indication: Invasive ductal breast carcinoma
  6. FULVESTRANT [Suspect]
     Active Substance: FULVESTRANT
     Indication: Invasive ductal breast carcinoma
     Dosage: 500, FROM APR-2018, CONTINUED ROUTE OF ADMIN (FREE TEXT): UNKNOWN ROUTE
     Route: 065
  7. FULVESTRANT [Suspect]
     Active Substance: FULVESTRANT
     Indication: Human epidermal growth factor receptor negative
     Dosage: UNK, FROM 2017, ONGOING ROUTE OF ADMIN (FREE TEXT): UNKNOWN ROUTE
     Route: 065
  8. PALBOCICLIB [Suspect]
     Active Substance: PALBOCICLIB
     Indication: Breast cancer metastatic
     Dosage: 100 MG X 21 DAYS EVERY 28 DAYS, FROM FEB-2018 TO APR-2018 ROUTE OF ADMIN (FREE TEXT): UNKNOWN ROUTE
     Route: 065
  9. PALBOCICLIB [Suspect]
     Active Substance: PALBOCICLIB
     Indication: HER2 negative breast cancer
     Dosage: 125 MG X 21 DAYS EVERY 28 DAYS, FROM : DEC-2017 TO FEB-2018 ROUTE OF ADMIN (FREE TEXT): UNKNOWN ROUT
     Route: 065
  10. PALBOCICLIB [Suspect]
     Active Substance: PALBOCICLIB
     Indication: Invasive ductal breast carcinoma
     Dosage: 75 MG/DAY X 21 DAYS EVERY 28 DAYS, CONTINUED, START DATE: APR-2018 ROUTE OF ADMIN (FREE TEXT): UNKNO
     Route: 065
  11. ZOLEDRONIC ACID [Suspect]
     Active Substance: ZOLEDRONIC ACID
     Indication: Breast cancer metastatic
     Dosage: UNK, START DATE: 2017 ROUTE OF ADMIN (FREE TEXT): UNKNOWN ROUTE
     Route: 065
  12. ZOLEDRONIC ACID [Suspect]
     Active Substance: ZOLEDRONIC ACID
     Indication: HER2 negative breast cancer
  13. ZOLEDRONIC ACID [Suspect]
     Active Substance: ZOLEDRONIC ACID
     Indication: Invasive ductal breast carcinoma

REACTIONS (1)
  - Death [Fatal]
